FAERS Safety Report 13316784 (Version 1)
Quarter: 2017Q1

REPORT INFORMATION
  Report Type: Spontaneous
  Country: IT (occurrence: IT)
  Receive Date: 20170310
  Receipt Date: 20170310
  Transmission Date: 20170428
  Serious: Yes (Other)
  Sender: FDA-Public Use
  Company Number: IT-UCBSA-2017008867

PATIENT
  Age: 40 Year
  Sex: Female

DRUGS (6)
  1. FYCOMPA [Concomitant]
     Active Substance: PERAMPANEL
     Indication: PRODUCT USED FOR UNKNOWN INDICATION
     Dosage: 8 MG, 1 DF
     Route: 048
  2. FRISIUM [Concomitant]
     Active Substance: CLOBAZAM
     Indication: PRODUCT USED FOR UNKNOWN INDICATION
     Dosage: 10 MG, 2 DF
     Route: 048
  3. ZOLOFT [Concomitant]
     Active Substance: SERTRALINE HYDROCHLORIDE
     Indication: PRODUCT USED FOR UNKNOWN INDICATION
     Dosage: 50 MG, 1 DF
     Route: 048
  4. KEPPRA [Concomitant]
     Active Substance: LEVETIRACETAM
     Indication: PRODUCT USED FOR UNKNOWN INDICATION
     Dosage: 500 MG, 2X/DAY (BID)
     Route: 048
  5. VIMPAT [Suspect]
     Active Substance: LACOSAMIDE
     Indication: PRODUCT USED FOR UNKNOWN INDICATION
     Dosage: 100 MG TABLET AT A DOSAGE OF 2 DF
     Route: 048
  6. VIMPAT [Suspect]
     Active Substance: LACOSAMIDE
     Dosage: DOSE INCREASED TO 100 + 150 MG

REACTIONS (5)
  - Vision blurred [Unknown]
  - Nausea [Unknown]
  - Vertigo [Unknown]
  - Retching [Unknown]
  - Balance disorder [Unknown]

NARRATIVE: CASE EVENT DATE: 20161027
